FAERS Safety Report 6372728-8 (Version None)
Quarter: 2009Q3

REPORT INFORMATION
  Report Type: 
  Country: None (occurrence: None)
  Receive Date: 20090924
  Receipt Date: 20081125
  Transmission Date: 20100115
  Serious: Yes (Hospitalization)
  Sender: FDA-Public Use
  Company Number: US-ASTRAZENECA-2008UW24192

PATIENT
  Age: 12215 Day
  Sex: Female
  Weight: 93.9 kg

DRUGS (3)
  1. SEROQUEL [Suspect]
     Indication: BIPOLAR II DISORDER
     Route: 048
     Dates: start: 20081014
  2. SEROQUEL [Suspect]
     Dosage: DOSE INCREASED
     Route: 048
     Dates: start: 20081103
  3. PROZAC [Concomitant]

REACTIONS (1)
  - SUICIDAL IDEATION [None]
